FAERS Safety Report 12679634 (Version 1)
Quarter: 2016Q3

REPORT INFORMATION
  Report Type: Spontaneous
  Country: US (occurrence: None)
  Receive Date: 20160823
  Receipt Date: 20160823
  Transmission Date: 20161109
  Serious: Yes (Other)
  Sender: FDA-Public Use
  Company Number: None

PATIENT
  Age: 64 Year
  Sex: Female

DRUGS (1)
  1. CLONIDINE. [Suspect]
     Active Substance: CLONIDINE
     Indication: HYPERTENSION
     Dosage: 4 PATCH(ES)  APPLIED AS MEDICATION PATCH TO SKIN
     Dates: start: 20160527, end: 20160624

REACTIONS (3)
  - Scar [None]
  - Application site burn [None]
  - Thermal burn [None]

NARRATIVE: CASE EVENT DATE: 20160625
